FAERS Safety Report 10032290 (Version 2)
Quarter: 2014Q2

REPORT INFORMATION
  Report Type: Spontaneous
  Country: JP (occurrence: JP)
  Receive Date: 20140324
  Receipt Date: 20140404
  Transmission Date: 20141212
  Serious: Yes (Other)
  Sender: FDA-Public Use
  Company Number: JP-NAPPMUNDI-GBR-2014-0017513

PATIENT
  Sex: Male

DRUGS (2)
  1. NORSPAN 10 MG [Suspect]
     Indication: PROCEDURAL PAIN
     Dosage: 10 MCG, Q1H
     Route: 062
     Dates: start: 201305, end: 20140310
  2. NORSPAN 10 MG [Suspect]
     Indication: INTERCOSTAL NEURALGIA

REACTIONS (4)
  - Paralysis [Unknown]
  - Hypoaesthesia [Not Recovered/Not Resolved]
  - Pain [Not Recovered/Not Resolved]
  - Application site dermatitis [Recovered/Resolved]
